FAERS Safety Report 15475889 (Version 2)
Quarter: 2018Q4

REPORT INFORMATION
  Report Type: Report from Study
  Country: CA (occurrence: CA)
  Receive Date: 20181009
  Receipt Date: 20181019
  Transmission Date: 20190205
  Serious: Yes (Other)
  Sender: FDA-Public Use
  Company Number: PHHY2018CA112285

PATIENT
  Age: 62 Year
  Sex: Female

DRUGS (2)
  1. ERELZI [Suspect]
     Active Substance: ETANERCEPT-SZZS
     Indication: RHEUMATOID ARTHRITIS
     Dosage: 50 MG, QW
     Route: 058
     Dates: start: 20180907
  2. ERELZI [Suspect]
     Active Substance: ETANERCEPT-SZZS
     Dosage: 50 MG, QW
     Route: 058
     Dates: start: 201809

REACTIONS (5)
  - Haemorrhage [Unknown]
  - Peripheral swelling [Unknown]
  - Bleeding time prolonged [Unknown]
  - Vein disorder [Unknown]
  - Injection site erythema [Unknown]

NARRATIVE: CASE EVENT DATE: 201809
